FAERS Safety Report 21833495 (Version 1)
Quarter: 2023Q1

REPORT INFORMATION
  Report Type: Spontaneous
  Country: FR (occurrence: FR)
  Receive Date: 20230107
  Receipt Date: 20230107
  Transmission Date: 20230417
  Serious: Yes (Other)
  Sender: FDA-Public Use
  Company Number: FR-AFSSAPS-MA20224938

PATIENT
  Age: 18 Year
  Sex: Female

DRUGS (2)
  1. AMOXICILLIN [Suspect]
     Active Substance: AMOXICILLIN
     Indication: Tonsillitis streptococcal
     Dosage: UNK
     Route: 048
     Dates: start: 20221212, end: 20221217
  2. AMOXICILLIN [Suspect]
     Active Substance: AMOXICILLIN
     Indication: Tonsillitis streptococcal
     Dosage: UNK
     Route: 048
     Dates: start: 20221218, end: 20221218

REACTIONS (2)
  - Face oedema [Recovered/Resolved]
  - Urticaria [Recovered/Resolved]

NARRATIVE: CASE EVENT DATE: 20221218
